FAERS Safety Report 11676940 (Version 1)
Quarter: 2015Q4

REPORT INFORMATION
  Report Type: Spontaneous
  Country: US (occurrence: US)
  Receive Date: 20151028
  Receipt Date: 20151028
  Transmission Date: 20160304
  Serious: Yes (Other)
  Sender: FDA-Public Use
  Company Number: US-BAYER-2015-447690

PATIENT

DRUGS (1)
  1. ALEVE [Suspect]
     Active Substance: NAPROXEN SODIUM
     Indication: PAIN

REACTIONS (8)
  - Blister [Unknown]
  - Skin irritation [Unknown]
  - Scar [Unknown]
  - Mouth haemorrhage [Unknown]
  - Blister rupture [Unknown]
  - Stomatitis [Unknown]
  - Oral mucosal blistering [Unknown]
  - Feeding disorder [Unknown]
